FAERS Safety Report 11645253 (Version 2)
Quarter: 2015Q4

REPORT INFORMATION
  Report Type: Spontaneous
  Country: US (occurrence: US)
  Receive Date: 20151020
  Receipt Date: 20151111
  Transmission Date: 20160304
  Serious: Yes (Other)
  Sender: FDA-Public Use
  Company Number: US-AKORN PHARMACEUTICALS-2015AKN00576

PATIENT
  Age: 45 Year
  Sex: Female
  Weight: 58.96 kg

DRUGS (3)
  1. MOTRIN [Suspect]
     Active Substance: IBUPROFEN
     Indication: PAIN
     Dosage: UNK MG, UNK
     Dates: start: 201508
  2. MYORISAN [Suspect]
     Active Substance: ISOTRETINOIN
     Indication: ACNE
     Dosage: UNK, 40 TO 80 MG PER DAY
     Dates: start: 20150428, end: 20150909
  3. CYMBALTA [Concomitant]
     Active Substance: DULOXETINE HYDROCHLORIDE
     Dosage: 20 MG, UNK

REACTIONS (13)
  - Electrocardiogram P wave abnormal [Unknown]
  - Decreased appetite [Recovering/Resolving]
  - Blood triglycerides increased [Unknown]
  - Pain [Recovered/Resolved]
  - Abnormal faeces [Unknown]
  - Faeces discoloured [Unknown]
  - Fatigue [Not Recovered/Not Resolved]
  - Blood cholesterol increased [Recovered/Resolved]
  - Bradycardia [Not Recovered/Not Resolved]
  - Abdominal pain [Recovered/Resolved]
  - Hepatomegaly [Not Recovered/Not Resolved]
  - Gastrooesophageal reflux disease [Not Recovered/Not Resolved]
  - Nausea [Unknown]

NARRATIVE: CASE EVENT DATE: 20150526
